FAERS Safety Report 24546983 (Version 1)
Quarter: 2024Q4

REPORT INFORMATION
  Report Type: Spontaneous
  Country: CA (occurrence: CA)
  Receive Date: 20241025
  Receipt Date: 20241025
  Transmission Date: 20250115
  Serious: Yes (Other)
  Sender: AUROBINDO
  Company Number: CA-AUROBINDO-AUR-APL-2024-052104

PATIENT
  Age: 43 Year
  Sex: Female

DRUGS (9)
  1. MONTELUKAST [Suspect]
     Active Substance: MONTELUKAST
     Indication: Anaphylactic reaction
     Dosage: 20 MILLIGRAM, DAILY
     Route: 065
  2. MONTELUKAST [Suspect]
     Active Substance: MONTELUKAST
     Indication: Cold urticaria
  3. DIPHENHYDRAMINE [Suspect]
     Active Substance: DIPHENHYDRAMINE
     Indication: Cold urticaria
     Dosage: 50 MILLIGRAM, 3 TIMES A DAY
     Route: 065
  4. DIPHENHYDRAMINE [Suspect]
     Active Substance: DIPHENHYDRAMINE
     Indication: Anaphylactic reaction
  5. RANITIDINE [Suspect]
     Active Substance: RANITIDINE
     Indication: Cold urticaria
     Dosage: 150 MILLIGRAM, DAILY
     Route: 065
  6. RANITIDINE [Suspect]
     Active Substance: RANITIDINE
     Indication: Anaphylactic reaction
  7. KETOTIFEN [Suspect]
     Active Substance: KETOTIFEN
     Indication: Cold urticaria
     Dosage: 4 MILLIGRAM, TWO TIMES A DAY
     Route: 065
  8. KETOTIFEN [Suspect]
     Active Substance: KETOTIFEN
     Indication: Anaphylactic reaction
  9. HUMAN IMMUNOGLOBULIN G [Suspect]
     Active Substance: HUMAN IMMUNOGLOBULIN G
     Indication: Anaphylactic reaction
     Dosage: 65 GRAM (EVERY 2 WEEKS)
     Route: 042

REACTIONS (1)
  - Drug ineffective [Unknown]
